FAERS Safety Report 8439309 (Version 2)
Quarter: 2013Q2

REPORT INFORMATION
  Report Type: Spontaneous
  Country: US (occurrence: None)
  Receive Date: 20120104
  Receipt Date: 20120508
  Transmission Date: 20140414
  Serious: Yes (Other)
  Sender: FDA-Public Use
  Company Number: 2011HGS-002595

PATIENT
  Age: 26 Year
  Sex: Female
  Weight: 72.58 kg

DRUGS (3)
  1. BENLYSTA [Suspect]
     Indication: SYSTEMIC LUPUS ERYTHEMATOSUS
     Route: 041
     Dates: start: 20110830
  2. ARALEN (CHLOROQUINE PHOPSHATE) [Concomitant]
  3. KEPPRA [Concomitant]

REACTIONS (4)
  - BONE PAIN [None]
  - HYPOAESTHESIA [None]
  - Pain in extremity [None]
  - Pain [None]
